FAERS Safety Report 21649384 (Version 2)
Quarter: 2023Q1

REPORT INFORMATION
  Report Type: Report from Study
  Country: US (occurrence: US)
  Receive Date: 20221128
  Receipt Date: 20230103
  Transmission Date: 20230418
  Serious: No
  Sender: FDA-Public Use
  Company Number: US-TAKEDA-2022TUS088947

PATIENT
  Sex: Female

DRUGS (1)
  1. MARIBAVIR [Suspect]
     Active Substance: MARIBAVIR
     Indication: Cytomegalovirus infection
     Dosage: 2 DOSAGE FORM, BID
     Route: 048
     Dates: start: 20221124

REACTIONS (2)
  - Somnolence [Unknown]
  - Fatigue [Unknown]
